FAERS Safety Report 7339715-4 (Version None)
Quarter: 2011Q1

REPORT INFORMATION
  Report Type: 
  Country: None (occurrence: None)
  Receive Date: 20110304
  Receipt Date: 20110304
  Transmission Date: 20110831
  Serious: Yes (Death)
  Sender: FDA-Public Use
  Company Number: None

PATIENT
  Age: 80 Year
  Weight: 91.3 kg

DRUGS (11)
  1. TORISEL [Suspect]
     Indication: PROSTATE CANCER
     Dosage: 25 MG/WEEK IV
     Route: 042
     Dates: start: 20100825, end: 20101227
  2. FINASTERIDE [Concomitant]
  3. XALATAN [Concomitant]
  4. TRUSOFT [Concomitant]
  5. FLOMAX [Concomitant]
  6. CALCIUM [Concomitant]
  7. AVELOX [Concomitant]
  8. CLARITIN [Concomitant]
  9. ZOCOR [Concomitant]
  10. LEXAPRO [Concomitant]
  11. MIDODRINE HYDROCHLORIDE [Concomitant]

REACTIONS (5)
  - HAEMATURIA [None]
  - DISEASE PROGRESSION [None]
  - DEEP VEIN THROMBOSIS [None]
  - PROSTATE CANCER [None]
  - OEDEMA PERIPHERAL [None]
